FAERS Safety Report 14186932 (Version 1)
Quarter: 2017Q4

REPORT INFORMATION
  Report Type: Spontaneous
  Country: HU (occurrence: HU)
  Receive Date: 20171114
  Receipt Date: 20171114
  Transmission Date: 20180321
  Serious: Yes (Death, Hospitalization)
  Sender: FDA-Public Use
  Company Number: HU-JNJFOC-20171113865

PATIENT
  Age: 85 Year
  Sex: Male

DRUGS (1)
  1. XARELTO [Suspect]
     Active Substance: RIVAROXABAN
     Indication: ATRIAL FIBRILLATION
     Route: 048
     Dates: start: 2017

REACTIONS (2)
  - Gastrointestinal haemorrhage [Unknown]
  - Death [Fatal]

NARRATIVE: CASE EVENT DATE: 201710
